FAERS Safety Report 8273013 (Version 7)
Quarter: 2012Q4

REPORT INFORMATION
  Report Type: 
  Country: US (occurrence: US)
  Receive Date: 20111202
  Receipt Date: 20121002
  Transmission Date: 20130627
  Serious: Yes (Death, Life-Threatening, Hospitalization, Disabling, Other)
  Sender: FDA-Public Use
  Company Number: US-ACTELION-A-NJ2011-57764

PATIENT
  Age: 46 Year
  Sex: Female

DRUGS (4)
  1. TRACLEER [Suspect]
     Indication: PULMONARY ARTERIAL HYPERTENSION
     Dosage: 125 mg, bid
     Route: 048
     Dates: start: 20110915
  2. TRACLEER [Suspect]
     Dosage: 62.5 mg, bid
     Route: 048
     Dates: start: 20091103, end: 20110914
  3. REVATIO [Concomitant]
  4. COUMADIN [Concomitant]

REACTIONS (6)
  - Acute respiratory failure [Fatal]
  - Tracheostomy malfunction [Fatal]
  - Convulsion [Not Recovered/Not Resolved]
  - Tracheomalacia [Unknown]
  - Chronic respiratory failure [Unknown]
  - Pulmonary arterial hypertension [Recovering/Resolving]
